FAERS Safety Report 14480788 (Version 1)
Quarter: 2018Q1

REPORT INFORMATION
  Report Type: Spontaneous
  Country: SE (occurrence: SE)
  Receive Date: 20180202
  Receipt Date: 20180202
  Transmission Date: 20180509
  Serious: Yes (Other)
  Sender: FDA-Public Use
  Company Number: SE-PFIZER INC-2018042505

PATIENT
  Age: 19 Year
  Sex: Female

DRUGS (3)
  1. MELATONIN AGB [Concomitant]
     Dosage: UNK
  2. THERALEN [Concomitant]
     Active Substance: TRIMEPRAZINE
     Dosage: UNK
  3. SERTRALINE HCL [Suspect]
     Active Substance: SERTRALINE HYDROCHLORIDE
     Indication: DEPRESSION
     Dosage: UNK
     Route: 048
     Dates: start: 20161214

REACTIONS (1)
  - Laryngospasm [Not Recovered/Not Resolved]

NARRATIVE: CASE EVENT DATE: 20180105
